FAERS Safety Report 15878663 (Version 4)
Quarter: 2020Q1

REPORT INFORMATION
  Report Type: Spontaneous
  Country: US (occurrence: US)
  Receive Date: 20190128
  Receipt Date: 20200103
  Transmission Date: 20200409
  Serious: No
  Sender: FDA-Public Use
  Company Number: US-PFIZER INC-2019038098

PATIENT
  Age: 80 Year
  Sex: Female
  Weight: 66 kg

DRUGS (4)
  1. IBRANCE [Suspect]
     Active Substance: PALBOCICLIB
     Dosage: 125 MG, CYCLIC[125MG BY MOUTH DAILY FOR 28 DAYS]
     Route: 048
     Dates: start: 2019, end: 201902
  2. IBRANCE [Suspect]
     Active Substance: PALBOCICLIB
     Dosage: 100 MG, UNK
     Dates: start: 2019
  3. LETROZOLE. [Concomitant]
     Active Substance: LETROZOLE
     Indication: BREAST CANCER METASTATIC
     Dosage: 2.5 MG, DAILY
     Dates: start: 201812
  4. IBRANCE [Suspect]
     Active Substance: PALBOCICLIB
     Indication: BREAST CANCER METASTATIC
     Dosage: UNK ((HIGHEST DOSE, 175 MG OR 150 MG)
     Dates: start: 20190106, end: 2019

REACTIONS (8)
  - White blood cell count decreased [Recovering/Resolving]
  - Decreased appetite [Recovering/Resolving]
  - Prescribed overdose [Unknown]
  - Ill-defined disorder [Recovered/Resolved]
  - Product dose omission [Unknown]
  - Neoplasm progression [Unknown]
  - Platelet count decreased [Unknown]
  - Back disorder [Unknown]

NARRATIVE: CASE EVENT DATE: 201901
